FAERS Safety Report 14739716 (Version 1)
Quarter: 2018Q2

REPORT INFORMATION
  Report Type: Spontaneous
  Country: US (occurrence: US)
  Receive Date: 20180410
  Receipt Date: 20180410
  Transmission Date: 20180711
  Serious: No
  Sender: FDA-Public Use
  Company Number: US-TEVA-2018-US-866639

PATIENT
  Sex: Female

DRUGS (1)
  1. PRAVASTATIN. [Suspect]
     Active Substance: PRAVASTATIN
     Route: 048

REACTIONS (2)
  - Product substitution issue [Unknown]
  - Sleep disorder [Unknown]
